FAERS Safety Report 9464863 (Version 1)
Quarter: 2013Q3

REPORT INFORMATION
  Report Type: Spontaneous
  Country: US (occurrence: US)
  Receive Date: 20130819
  Receipt Date: 20130819
  Transmission Date: 20140515
  Serious: Yes (Other)
  Sender: FDA-Public Use
  Company Number: PHHY2013US087050

PATIENT
  Age: 45 Year
  Sex: Male

DRUGS (4)
  1. ZOLPIDEM [Suspect]
     Dosage: 10 MG AT NIGHT
  2. PAROXETINE [Interacting]
     Indication: MAJOR DEPRESSION
     Dosage: 12.5 MG DAILY
  3. PAROXETINE [Interacting]
     Dosage: 25 MG DAILY
  4. PAROXETINE [Interacting]
     Dosage: 37.5 MG DAILY

REACTIONS (7)
  - Aggression [Unknown]
  - Confusional state [Unknown]
  - Amnesia [Unknown]
  - Initial insomnia [Unknown]
  - Drug ineffective [Unknown]
  - Drug interaction [Unknown]
  - Extra dose administered [Unknown]
